FAERS Safety Report 6820386-8 (Version None)
Quarter: 2010Q3

REPORT INFORMATION
  Report Type: 
  Country: None (occurrence: None)
  Receive Date: 20100707
  Receipt Date: 20100629
  Transmission Date: 20110219
  Serious: Yes (Other)
  Sender: FDA-Public Use
  Company Number: BR-SANOFI-AVENTIS-2010SA038192

PATIENT
  Age: 68 Year
  Sex: Female
  Weight: 84 kg

DRUGS (12)
  1. LANTUS [Suspect]
     Indication: TYPE 2 DIABETES MELLITUS
     Route: 058
     Dates: start: 20050101
  2. AUTOPEN 24 [Suspect]
  3. PANTOPRAZOLE [Concomitant]
     Indication: GASTRIC DISORDER
     Route: 048
  4. LEVOTHYROXINE SODIUM [Concomitant]
     Indication: THYROID DISORDER
     Route: 048
  5. SOTALOL HCL [Concomitant]
     Indication: ARRHYTHMIA
     Route: 048
  6. LEXOTAN [Concomitant]
     Route: 048
  7. LOSARTAN POSTASSIUM [Concomitant]
     Route: 048
  8. FUROSEMIDE [Concomitant]
     Indication: BLOOD PRESSURE
     Route: 048
  9. CENTRUM [Concomitant]
     Route: 048
  10. METFORMIN HCL [Concomitant]
     Indication: TYPE 2 DIABETES MELLITUS
     Route: 048
  11. JANUMET [Concomitant]
     Indication: TYPE 2 DIABETES MELLITUS
     Route: 048
  12. NOVORAPID [Concomitant]
     Route: 058

REACTIONS (3)
  - ARTHRALGIA [None]
  - FALL [None]
  - JOINT INJURY [None]
